FAERS Safety Report 5650870-4 (Version None)
Quarter: 2008Q1

REPORT INFORMATION
  Report Type: 
  Country: None (occurrence: None)
  Receive Date: 20080131
  Receipt Date: 20071207
  Transmission Date: 20080703
  Serious: No
  Sender: FDA-Public Use
  Company Number: US200712001822

PATIENT
  Age: 48 Year
  Sex: Male
  Weight: 95.2 kg

DRUGS (9)
  1. BYETTA [Suspect]
     Indication: TYPE 2 DIABETES MELLITUS
     Dosage: 5 UG, 2/D, SUBCUTANEOUS ; 10 UG, 2/D, SUBCUTANEOUS ; 10 UG, AS NEEDED, SUBCUTANEOUS
     Route: 058
     Dates: start: 20060101, end: 20060101
  2. BYETTA [Suspect]
     Indication: TYPE 2 DIABETES MELLITUS
     Dosage: 5 UG, 2/D, SUBCUTANEOUS ; 10 UG, 2/D, SUBCUTANEOUS ; 10 UG, AS NEEDED, SUBCUTANEOUS
     Route: 058
     Dates: start: 20060101
  3. GLUCOVANCE [Concomitant]
  4. PRANDIN /USA/ (REPAGLINIDE) [Concomitant]
  5. ZOCOR [Concomitant]
  6. ALTACE [Concomitant]
  7. MIRALAX [Concomitant]
  8. GLUCOSE (GLUCOSE) [Concomitant]
  9. DULCOLAX [Concomitant]

REACTIONS (7)
  - BLOOD GLUCOSE INCREASED [None]
  - DRUG INTERACTION [None]
  - HYPERHIDROSIS [None]
  - HYPOGLYCAEMIA [None]
  - IMPAIRED GASTRIC EMPTYING [None]
  - TREMOR [None]
  - WEIGHT DECREASED [None]
